FAERS Safety Report 8499185-X (Version None)
Quarter: 2012Q3

REPORT INFORMATION
  Report Type: 
  Country: None (occurrence: None)
  Receive Date: 20120710
  Receipt Date: 20120702
  Transmission Date: 20120928
  Serious: Yes (Other)
  Sender: FDA-Public Use
  Company Number: US-BAYER-2011-005534

PATIENT
  Age: 64 Year
  Sex: Female
  Weight: 67 kg

DRUGS (15)
  1. SOTALOL HCL [Concomitant]
     Dosage: 40 MG, BID
     Route: 048
     Dates: start: 20061005
  2. EXJADE [Concomitant]
     Dosage: 500 MG, QD
     Route: 048
  3. MANNITOL [Concomitant]
     Dosage: 12.5 G, UNK
  4. TRASYLOL [Suspect]
     Indication: CARDIAC FAILURE CONGESTIVE
  5. HEPARIN [Concomitant]
  6. TRASYLOL [Suspect]
     Indication: MITRAL VALVE REPAIR
  7. ASPIRIN [Concomitant]
     Dosage: 1.25 G, QD
     Route: 048
     Dates: start: 20061009
  8. DIGOXIN [Concomitant]
     Dosage: 0.125 MG, QD
     Route: 048
     Dates: start: 20061205
  9. TRASYLOL [Suspect]
     Indication: MITRAL VALVE INCOMPETENCE
     Dosage: 100 ML, PUMP PRIME
     Dates: start: 20061009
  10. AMBIEN [Concomitant]
     Indication: INSOMNIA
     Dosage: 5 MG, HS
     Route: 048
     Dates: start: 20061005
  11. SODIUM BICARBONATE [Concomitant]
  12. RED BLOOD CELLS [Concomitant]
     Dosage: 5 U, UNK
     Route: 042
  13. LASIX [Concomitant]
     Dosage: 60 MG, BID
     Route: 048
     Dates: start: 20061005
  14. LEVAQUIN [Concomitant]
     Dosage: 250 MG, QD
     Route: 048
     Dates: start: 20061005
  15. PROTAMINE SULFATE [Concomitant]

REACTIONS (13)
  - RENAL INJURY [None]
  - ANHEDONIA [None]
  - DEPRESSION [None]
  - MULTI-ORGAN FAILURE [None]
  - RENAL FAILURE [None]
  - FEAR [None]
  - PAIN [None]
  - NERVOUSNESS [None]
  - INJURY [None]
  - ANXIETY [None]
  - EMOTIONAL DISTRESS [None]
  - FEAR OF DEATH [None]
  - UNEVALUABLE EVENT [None]
